FAERS Safety Report 24893108 (Version 3)
Quarter: 2025Q1

REPORT INFORMATION
  Report Type: Report from Study
  Country: IN (occurrence: IN)
  Receive Date: 20250128
  Receipt Date: 20250327
  Transmission Date: 20250409
  Serious: Yes (Other)
  Sender: ROCHE
  Company Number: IN-ROCHE-10000184641

PATIENT
  Age: 66 Year
  Sex: Male

DRUGS (2)
  1. TECENTRIQ [Suspect]
     Active Substance: ATEZOLIZUMAB
     Indication: Hepatocellular carcinoma
     Route: 042
     Dates: start: 20240904
  2. TECENTRIQ [Suspect]
     Active Substance: ATEZOLIZUMAB
     Route: 042
     Dates: start: 20240904

REACTIONS (14)
  - Off label use [Unknown]
  - Rash [Unknown]
  - Fistula [Unknown]
  - Haematochezia [Recovering/Resolving]
  - Abdominal pain upper [Unknown]
  - Vertebral lesion [Unknown]
  - Metastases to bone [Unknown]
  - Neoplasm [Unknown]
  - Asthenia [Not Recovered/Not Resolved]
  - Nausea [Unknown]
  - Hypertension [Unknown]
  - Platelet count decreased [Unknown]
  - Rash pruritic [Unknown]
  - Pyrexia [Unknown]

NARRATIVE: CASE EVENT DATE: 20241007
